FAERS Safety Report 6565501-9 (Version None)
Quarter: 2010Q1

REPORT INFORMATION
  Report Type: 
  Country: None (occurrence: None)
  Receive Date: 20100201
  Receipt Date: 20100120
  Transmission Date: 20100710
  Serious: Yes (Other)
  Sender: FDA-Public Use
  Company Number: US-ELI_LILLY_AND_COMPANY-US201001004823

PATIENT
  Sex: Male

DRUGS (14)
  1. EFFIENT [Suspect]
     Indication: PERCUTANEOUS CORONARY INTERVENTION
     Dosage: 10 MG, DAILY (1/D)
     Route: 048
     Dates: start: 20091130, end: 20100112
  2. PLAVIX [Concomitant]
     Dates: start: 20100101
  3. LIPITOR [Concomitant]
     Indication: HYPERLIPIDAEMIA
     Dosage: 10 MG, UNK
     Dates: end: 20100112
  4. NIASPAN [Concomitant]
     Dosage: 500 MG, UNK
  5. CARDIZEM CD [Concomitant]
     Dosage: 180 MG, UNK
  6. ASPIRIN [Concomitant]
     Dosage: 81 MG, UNK
  7. COENZYME Q10 [Concomitant]
  8. FOSAMAX [Concomitant]
     Dosage: 70 MG, UNK
  9. GLUCOSAMINE [Concomitant]
     Dosage: 1000 MG, UNK
  10. MULTI-VITAMIN [Concomitant]
  11. LOVAZA [Concomitant]
  12. ZANTAC [Concomitant]
  13. REGLAN [Concomitant]
     Dosage: 10 MG, UNK
  14. VITAMIN D [Concomitant]

REACTIONS (2)
  - ALANINE AMINOTRANSFERASE INCREASED [None]
  - ASPARTATE AMINOTRANSFERASE INCREASED [None]
